FAERS Safety Report 11089891 (Version 1)
Quarter: 2015Q2

REPORT INFORMATION
  Report Type: Spontaneous
  Country: GB (occurrence: None)
  Receive Date: 20150501
  Receipt Date: 20150501
  Transmission Date: 20150821
  Serious: Yes (Death)
  Sender: FDA-Public Use
  Company Number: FK201502016

PATIENT
  Age: 70 Year
  Sex: Male

DRUGS (2)
  1. SODIUM BICARBONATE. [Suspect]
     Active Substance: SODIUM BICARBONATE
     Indication: HAEMODIALYSIS
  2. SODIUM CHLORIDE (MANUFACTURER UNKNOWN) (SODIUM CHLORIDE) (SODIUM CHLORIDE) [Suspect]
     Active Substance: SODIUM CHLORIDE
     Indication: HYPOTENSION

REACTIONS (2)
  - Hypotension [None]
  - Medical device complication [None]
